FAERS Safety Report 5055197-X (Version None)
Quarter: 2006Q3

REPORT INFORMATION
  Report Type: 
  Country: None (occurrence: None)
  Receive Date: 20060714
  Receipt Date: 20060707
  Transmission Date: 20061208
  Serious: Yes (Hospitalization, Other)
  Sender: FDA-Public Use
  Company Number: CHWYE054107JUL06

PATIENT
  Age: 38 Year
  Sex: Male

DRUGS (1)
  1. EFFEXOR [Suspect]
     Dosage: ORAL
     Route: 048
     Dates: end: 20060212

REACTIONS (6)
  - BLOOD LACTIC ACID INCREASED [None]
  - EPILEPSY [None]
  - INSOMNIA [None]
  - LOSS OF CONSCIOUSNESS [None]
  - MUSCLE SPASMS [None]
  - URINARY INCONTINENCE [None]
